FAERS Safety Report 13301003 (Version 6)
Quarter: 2017Q3

REPORT INFORMATION
  Report Type: Spontaneous
  Country: JP (occurrence: JP)
  Receive Date: 20170307
  Receipt Date: 20170705
  Transmission Date: 20171127
  Serious: Yes (Death)
  Sender: FDA-Public Use
  Company Number: JP-ROCHE-1903118

PATIENT
  Age: 69 Year
  Sex: Female
  Weight: 39 kg

DRUGS (7)
  1. OPSO [Concomitant]
     Active Substance: MORPHINE HYDROCHLORIDE
     Dosage: DOSAGE IS UNCERTAIN. ?ADMINISTERING TIME UNCERTAINTY
     Route: 065
  2. AVASTIN [Suspect]
     Active Substance: BEVACIZUMAB
     Indication: BREAST CANCER
     Dosage: TREATMENT LINE: 1
     Route: 041
     Dates: start: 20160224, end: 20160525
  3. PACLITAXEL. [Concomitant]
     Active Substance: PACLITAXEL
     Indication: BREAST CANCER
     Dosage: DOSAGE IS UNCERTAIN.
     Route: 041
     Dates: start: 2016, end: 20160817
  4. PACLITAXEL. [Concomitant]
     Active Substance: PACLITAXEL
     Indication: BREAST CANCER
     Dosage: DOSAGE IS UNCERTAIN.
     Route: 041
     Dates: start: 20160229, end: 20160817
  5. LOXONIN [Concomitant]
     Active Substance: LOXOPROFEN SODIUM
     Dosage: DOSAGE IS UNCERTAIN. ?ADMINISTERING TIME UNCERTAINTY
     Route: 065
  6. AZUNOL [Concomitant]
     Active Substance: SODIUM GUALENATE
     Dosage: DOSAGE IS UNCERTAIN. ?ADMINISTERING TIME UNCERTAINTY
     Route: 065
  7. CALONAL [Concomitant]
     Active Substance: ACETAMINOPHEN
     Dosage: DOSAGE IS UNCERTAIN. ?ADMINISTERING TIME UNCERTAINTY
     Route: 065

REACTIONS (3)
  - Breast cancer [Fatal]
  - Herpes zoster [Unknown]
  - Hepatic atrophy [Fatal]

NARRATIVE: CASE EVENT DATE: 20160422
